FAERS Safety Report 9132819 (Version 2)
Quarter: 2013Q1

REPORT INFORMATION
  Report Type: Report from Study
  Country: US (occurrence: US)
  Receive Date: 20130301
  Receipt Date: 20130312
  Transmission Date: 20140127
  Serious: Yes (Hospitalization)
  Sender: FDA-Public Use
  Company Number: US-ACTELION-A-NJ2013-80145

PATIENT
  Age: 75 Year
  Sex: Female

DRUGS (3)
  1. VENTAVIS [Suspect]
     Indication: PULMONARY ARTERIAL HYPERTENSION
     Dosage: 5 MCG, 3-4 X DAILY
     Route: 055
     Dates: start: 201201
  2. TRACLEER [Concomitant]
     Indication: PULMONARY ARTERIAL HYPERTENSION
     Dosage: 125 MG, BID
     Route: 048
     Dates: start: 201107
  3. TRACLEER [Concomitant]
     Dosage: 62.5 MG, BID
     Route: 048
     Dates: start: 201106, end: 201107

REACTIONS (4)
  - Chronic obstructive pulmonary disease [Recovering/Resolving]
  - Cardiac failure congestive [Recovering/Resolving]
  - Dyspnoea [Recovering/Resolving]
  - Blood glucose fluctuation [Recovering/Resolving]
